FAERS Safety Report 17727121 (Version 1)
Quarter: 2020Q2

REPORT INFORMATION
  Report Type: Spontaneous
  Country: AU (occurrence: AU)
  Receive Date: 20200430
  Receipt Date: 20200430
  Transmission Date: 20200714
  Serious: Yes (Death, Hospitalization, Other)
  Sender: FDA-Public Use
  Company Number: AU-ACTELION-A-CH2020-204500

PATIENT

DRUGS (3)
  1. EPOPROSTENOL SODIUM. [Suspect]
     Active Substance: EPOPROSTENOL SODIUM
     Dosage: 20.5 NG/KG, PER MIN
     Route: 042
  2. EPOPROSTENOL SODIUM. [Suspect]
     Active Substance: EPOPROSTENOL SODIUM
     Indication: PULMONARY ARTERIAL HYPERTENSION
     Dosage: 8.0 NG/KG, PER MIN
     Route: 042
  3. EPOPROSTENOL SODIUM. [Suspect]
     Active Substance: EPOPROSTENOL SODIUM
     Dosage: 23 NG/KG, PER MIN
     Route: 042

REACTIONS (34)
  - Pulmonary arterial hypertension [Unknown]
  - Sepsis [Unknown]
  - Treatment noncompliance [Unknown]
  - Infection [Unknown]
  - Haemorrhage [Unknown]
  - Platelet count decreased [Unknown]
  - Dizziness [Unknown]
  - Catheter management [Unknown]
  - Burning sensation [Unknown]
  - Chest pain [Unknown]
  - Fatigue [Unknown]
  - Death [Fatal]
  - Condition aggravated [Unknown]
  - Complication associated with device [Unknown]
  - Ventricular arrhythmia [Unknown]
  - Flushing [Unknown]
  - Pain [Unknown]
  - Pain in extremity [Unknown]
  - Transplant [Unknown]
  - Abdominal pain [Unknown]
  - Vomiting [Unknown]
  - Device difficult to use [Unknown]
  - Hypotension [Unknown]
  - Nausea [Unknown]
  - Visual impairment [Unknown]
  - Arthralgia [Unknown]
  - Pain in jaw [Unknown]
  - Injection site pain [Unknown]
  - Haemoptysis [Unknown]
  - Drug intolerance [Unknown]
  - Abdominal discomfort [Unknown]
  - Diarrhoea [Unknown]
  - Headache [Unknown]
  - Thrombosis [Unknown]
